FAERS Safety Report 4562993-1 (Version None)
Quarter: 2005Q1

REPORT INFORMATION
  Report Type: 
  Country: None (occurrence: None)
  Receive Date: 20050121
  Receipt Date: 20050113
  Transmission Date: 20050727
  Serious: Yes (Other)
  Sender: FDA-Public Use
  Company Number: 2005011983

PATIENT
  Age: 56 Year
  Sex: Female

DRUGS (2)
  1. EPIRUBICIN [Suspect]
     Indication: BREAST CANCER METASTATIC
     Dosage: 106 MG (CYCLIC), INTRAVENOUS
     Route: 042
     Dates: start: 20041126, end: 20041126
  2. PACLITAXEL [Suspect]
     Indication: BREAST CANCER METASTATIC
     Dosage: 300 MG (CYCLIC), INTRAVENOUS
     Route: 042
     Dates: start: 20041126, end: 20041126

REACTIONS (1)
  - PAIN IN EXTREMITY [None]
